FAERS Safety Report 13065344 (Version 3)
Quarter: 2017Q1

REPORT INFORMATION
  Report Type: Spontaneous
  Country: KR (occurrence: KR)
  Receive Date: 20161227
  Receipt Date: 20170207
  Transmission Date: 20170428
  Serious: Yes (Hospitalization, Other)
  Sender: FDA-Public Use
  Company Number: KR-009507513-1612KOR013270

PATIENT
  Age: 67 Year
  Sex: Male
  Weight: 61.7 kg

DRUGS (18)
  1. MUTERAN [Concomitant]
     Active Substance: ACETYLCYSTEINE
     Indication: PRODUCTIVE COUGH
     Dosage: 200 MG, TID
     Route: 048
     Dates: start: 20160803, end: 20160825
  2. ABSTRAL [Concomitant]
     Active Substance: FENTANYL CITRATE
     Indication: CANCER PAIN
     Dosage: 300 MICROGRAM, QD
     Route: 060
     Dates: start: 20160827, end: 20160920
  3. EMEND (FOSAPREPITANT DIMEGLUMINE) [Suspect]
     Active Substance: FOSAPREPITANT DIMEGLUMINE
     Indication: PROPHYLAXIS OF NAUSEA AND VOMITING
     Dosage: 150 MG, ONCE, CYCLE 1
     Route: 042
     Dates: start: 20160809, end: 20160809
  4. DEXAMETHASONE SODIUM PHOSPHATE. [Concomitant]
     Active Substance: DEXAMETHASONE SODIUM PHOSPHATE
     Indication: PROPHYLAXIS OF NAUSEA AND VOMITING
     Dosage: (STRENGHT: 5MG/ML) 12 MG, ONCE
     Route: 042
     Dates: start: 20160830, end: 20160830
  5. MYPOL [Concomitant]
     Indication: PAIN
     Dosage: 2 CAPSULES, TID
     Route: 048
     Dates: start: 20160808, end: 20160825
  6. EMEND (FOSAPREPITANT DIMEGLUMINE) [Suspect]
     Active Substance: FOSAPREPITANT DIMEGLUMINE
     Dosage: 150 MG, ONCE, CYCLE 3
     Route: 042
     Dates: start: 20160921, end: 20160921
  7. IMPACTAMIN [Concomitant]
     Indication: VITAMIN SUPPLEMENTATION
     Dosage: 1 TABLET, QD
     Route: 048
     Dates: start: 20160810, end: 20160825
  8. HANMI TAMS [Concomitant]
     Indication: BENIGN PROSTATIC HYPERPLASIA
     Dosage: 0.4 MG, QD
     Route: 048
     Dates: end: 20160828
  9. CURAN [Concomitant]
     Active Substance: RANITIDINE HYDROCHLORIDE
     Indication: PROPHYLAXIS
     Dosage: (STRENGHT: 50MG/2ML) 50 MG, ONCE
     Route: 042
     Dates: start: 20160830, end: 20160830
  10. EMEND (FOSAPREPITANT DIMEGLUMINE) [Suspect]
     Active Substance: FOSAPREPITANT DIMEGLUMINE
     Dosage: 150 MG, ONCE, CYCLE 4
     Route: 042
     Dates: start: 20161012, end: 20161012
  11. CISPLAN [Concomitant]
     Active Substance: CISPLATIN
     Indication: SMALL CELL LUNG CANCER
     Dosage: STRENGHT: 50MG/100ML VIAL) CYCLE 2, 116 MG, ONCE
     Route: 042
     Dates: start: 20160830, end: 20160830
  12. HARNAL [Concomitant]
     Active Substance: TAMSULOSIN HYDROCHLORIDE
     Indication: BENIGN PROSTATIC HYPERPLASIA
     Dosage: 0.4 MG, QD
     Route: 048
     Dates: start: 20160829, end: 20160901
  13. PROSCAR [Concomitant]
     Active Substance: FINASTERIDE
     Indication: BENIGN PROSTATIC HYPERPLASIA
     Dosage: 50 MG, QD
     Route: 048
     Dates: start: 20160829, end: 20160901
  14. BETMIGA [Concomitant]
     Active Substance: MIRABEGRON
     Indication: BENIGN PROSTATIC HYPERPLASIA
     Dosage: 50 MG, QD
     Route: 048
     Dates: end: 20160907
  15. MUTERAN [Concomitant]
     Active Substance: ACETYLCYSTEINE
     Indication: PRODUCTIVE COUGH
     Dosage: (STRENGHT: 100MG/ML 6ML) 600 MG, BID
     Route: 042
     Dates: start: 20160826, end: 20160902
  16. EMEND (FOSAPREPITANT DIMEGLUMINE) [Suspect]
     Active Substance: FOSAPREPITANT DIMEGLUMINE
     Dosage: 150 MG, ONCE, CYCLE 2
     Route: 042
     Dates: start: 20160830, end: 20160830
  17. SANCUSO [Concomitant]
     Active Substance: GRANISETRON
     Indication: PROPHYLAXIS OF NAUSEA AND VOMITING
     Dosage: (STRENGHT: 80.2X66.6 MM2), 1 EA, ONCE
     Route: 062
     Dates: start: 20160829, end: 20160904
  18. FINARID [Concomitant]
     Indication: BENIGN PROSTATIC HYPERPLASIA
     Dosage: 1 TABLET, QD
     Route: 048
     Dates: end: 20160828

REACTIONS (8)
  - Productive cough [Recovered/Resolved]
  - Blood sodium decreased [Recovered/Resolved]
  - Inappropriate antidiuretic hormone secretion [Recovered/Resolved]
  - Constipation [Recovered/Resolved]
  - Dyspepsia [Recovered/Resolved]
  - Pyrexia [Recovered/Resolved]
  - Decreased appetite [Recovered/Resolved]
  - Hyponatraemia [Recovered/Resolved]

NARRATIVE: CASE EVENT DATE: 20160830
